FAERS Safety Report 4280804-9 (Version None)
Quarter: 2004Q1

REPORT INFORMATION
  Report Type: 
  Country: None (occurrence: None)
  Receive Date: 20040127
  Receipt Date: 20040119
  Transmission Date: 20041129
  Serious: Yes (Hospitalization)
  Sender: FDA-Public Use
  Company Number: 163-20785-03110368(1)

PATIENT
  Age: 75 Year
  Sex: Male

DRUGS (3)
  1. THALOMID [Suspect]
     Indication: MULTIPLE MYELOMA
     Dosage: 200 MG, HS, ORAL
     Route: 048
     Dates: start: 20030320, end: 20030430
  2. THALOMID [Suspect]
     Indication: MULTIPLE MYELOMA
     Dosage: 200 MG, HS, ORAL
     Route: 048
     Dates: start: 20030101, end: 20031030
  3. DECADRON [Concomitant]

REACTIONS (7)
  - CONSTIPATION [None]
  - DIVERTICULITIS [None]
  - DIZZINESS [None]
  - FATIGUE [None]
  - LARGE INTESTINE PERFORATION [None]
  - NAUSEA [None]
  - NEOPLASM PROGRESSION [None]
